FAERS Safety Report 16844217 (Version 1)
Quarter: 2019Q3

REPORT INFORMATION
  Report Type: Spontaneous
  Country: PT (occurrence: PT)
  Receive Date: 20190924
  Receipt Date: 20190924
  Transmission Date: 20191005
  Serious: Yes (Other)
  Sender: FDA-Public Use
  Company Number: PT-PFIZER INC-2019407295

PATIENT
  Age: 21 Year
  Sex: Male

DRUGS (2)
  1. COSENTYX [Suspect]
     Active Substance: SECUKINUMAB
     Dosage: 150 MG, UNK
     Dates: start: 201808
  2. METHYLPREDNISOLONE. [Suspect]
     Active Substance: METHYLPREDNISOLONE
     Dosage: 80 MG, UNK

REACTIONS (3)
  - Muscle atrophy [Unknown]
  - Oligoarthritis [Unknown]
  - Tendon disorder [Unknown]

NARRATIVE: CASE EVENT DATE: 201905
